FAERS Safety Report 26215214 (Version 1)
Quarter: 2025Q4

REPORT INFORMATION
  Report Type: Spontaneous
  Country: CA (occurrence: CA)
  Receive Date: 20251230
  Receipt Date: 20251230
  Transmission Date: 20260118
  Serious: Yes (Other)
  Sender: TEVA
  Company Number: CA-TEVA-VS-3407353

PATIENT
  Age: 70 Year
  Sex: Male

DRUGS (2)
  1. SPIRONOLACTONE [Interacting]
     Active Substance: SPIRONOLACTONE
     Indication: Cardiac failure
     Route: 065
  2. ABIRATERONE [Interacting]
     Active Substance: ABIRATERONE
     Indication: Hormone-dependent prostate cancer
     Route: 065

REACTIONS (2)
  - Prostate cancer [Recovered/Resolved]
  - Drug interaction [Unknown]
